FAERS Safety Report 21806773 (Version 1)
Quarter: 2023Q1

REPORT INFORMATION
  Report Type: Spontaneous
  Country: BR (occurrence: BR)
  Receive Date: 20230102
  Receipt Date: 20230102
  Transmission Date: 20230418
  Serious: Yes (Death, Hospitalization, Other)
  Sender: FDA-Public Use
  Company Number: BR-ViiV Healthcare Limited-BR2022GSK194518

PATIENT

DRUGS (7)
  1. LAMIVUDINE [Suspect]
     Active Substance: LAMIVUDINE
     Indication: HIV infection
     Dosage: UNK
     Dates: start: 2008
  2. TENOFOVIR DISOPROXIL FUMARATE [Suspect]
     Active Substance: TENOFOVIR DISOPROXIL FUMARATE
     Indication: HIV infection
     Dosage: UNK
     Dates: start: 2008
  3. LOPINAVIR\RITONAVIR [Suspect]
     Active Substance: LOPINAVIR\RITONAVIR
     Indication: HIV infection
     Dosage: UNK
     Dates: start: 2008
  4. RITONAVIR [Concomitant]
     Active Substance: RITONAVIR
     Indication: HIV infection
     Dosage: UNK
  5. ATAZANAVIR [Concomitant]
     Active Substance: ATAZANAVIR
     Indication: HIV infection
     Dosage: UNK
  6. LAMIVUDINE\TENOFOVIR [Concomitant]
     Active Substance: LAMIVUDINE\TENOFOVIR
     Indication: HIV infection
     Dosage: UNK
  7. DOLUTEGRAVIR [Concomitant]
     Active Substance: DOLUTEGRAVIR
     Indication: HIV infection

REACTIONS (22)
  - Acute promyelocytic leukaemia [Fatal]
  - Disseminated intravascular coagulation [Fatal]
  - Pulmonary haemorrhage [Fatal]
  - Leukostasis syndrome [Fatal]
  - Tumour lysis syndrome [Fatal]
  - Hyperleukocytosis [Fatal]
  - Virologic failure [Recovered/Resolved]
  - Pyrexia [Unknown]
  - Fatigue [Unknown]
  - Odynophagia [Unknown]
  - Respiratory distress [Unknown]
  - Ear haemorrhage [Unknown]
  - Gingival bleeding [Unknown]
  - Anaemia [Unknown]
  - Dyspnoea [Unknown]
  - Hypoxia [Unknown]
  - Lung infiltration [Unknown]
  - Respiratory failure [Unknown]
  - Febrile neutropenia [Unknown]
  - Leukopenia [Unknown]
  - Lung opacity [Unknown]
  - Renal failure [Unknown]
